FAERS Safety Report 8325218-7 (Version None)
Quarter: 2012Q2

REPORT INFORMATION
  Report Type: 
  Country: None (occurrence: None)
  Receive Date: 20120501
  Receipt Date: 20120420
  Transmission Date: 20120825
  Serious: Yes (Other)
  Sender: FDA-Public Use
  Company Number: US-ROCHE-1053698

PATIENT
  Sex: Female

DRUGS (3)
  1. PEGASYS [Suspect]
     Indication: HEPATITIS C
  2. TELAPREVIR [Suspect]
     Indication: HEPATITIS C
     Dates: end: 20120210
  3. COPEGUS [Suspect]
     Indication: HEPATITIS C

REACTIONS (7)
  - HYPERSOMNIA [None]
  - PLATELET COUNT DECREASED [None]
  - DEPRESSION [None]
  - ALOPECIA [None]
  - EPISTAXIS [None]
  - FATIGUE [None]
  - MOUTH HAEMORRHAGE [None]
